FAERS Safety Report 21775840 (Version 1)
Quarter: 2022Q4

REPORT INFORMATION
  Report Type: Spontaneous
  Country: US (occurrence: US)
  Receive Date: 20221226
  Receipt Date: 20221226
  Transmission Date: 20230113
  Serious: No
  Sender: FDA-Public Use
  Company Number: US-MIGRATION_PFIZER-2022BHV002363

PATIENT
  Age: 81 Year
  Sex: Female
  Weight: 83.990 kg

DRUGS (1)
  1. NURTEC ODT [Suspect]
     Active Substance: RIMEGEPANT SULFATE
     Indication: Migraine
     Dosage: 75 MG ONCE DAILY AS NEEDED AND MAY REPEAT IN 2 HOURS IF HEADACHE PERSISTS / STATES SHE WAS ONLY GIVE
     Route: 048
     Dates: start: 20220827

REACTIONS (2)
  - Drug ineffective [Not Recovered/Not Resolved]
  - Inappropriate schedule of product administration [Not Recovered/Not Resolved]

NARRATIVE: CASE EVENT DATE: 20220101
